FAERS Safety Report 5123410-6 (Version None)
Quarter: 2006Q4

REPORT INFORMATION
  Report Type: 
  Country: None (occurrence: None)
  Receive Date: 20061005
  Receipt Date: 20060918
  Transmission Date: 20070319
  Serious: Yes (Death, Congenital Anomaly)
  Sender: FDA-Public Use
  Company Number: AU200604004814

PATIENT
  Age: 22 Week
  Sex: Male

DRUGS (1)
  1. OLANZAPINE [Suspect]
     Dosage: GRANSPLACENTAL
     Route: 064

REACTIONS (7)
  - ABORTION SPONTANEOUS [None]
  - CHROMOSOME ABNORMALITY [None]
  - CONGENITAL CARDIOVASCULAR ANOMALY [None]
  - CONGENITAL CYST [None]
  - CONGENITAL FOOT MALFORMATION [None]
  - DRUG EXPOSURE DURING PREGNANCY [None]
  - KIDNEY MALFORMATION [None]
